FAERS Safety Report 19079890 (Version 4)
Quarter: 2021Q2

REPORT INFORMATION
  Report Type: Report from Study
  Country: US (occurrence: US)
  Receive Date: 20210331
  Receipt Date: 20210630
  Transmission Date: 20210717
  Serious: Yes (Other)
  Sender: FDA-Public Use
  Company Number: NVSC2020US337370

PATIENT
  Age: 1 Year
  Sex: Female

DRUGS (18)
  1. PREDNISOLONE. [Concomitant]
     Active Substance: PREDNISOLONE
     Dosage: 6.7 ML (CONC 3MG/ML)
     Route: 065
     Dates: start: 20210128, end: 20210130
  2. PREDNISOLONE. [Concomitant]
     Active Substance: PREDNISOLONE
     Dosage: 3.2 ML (CONC 3MG/ML)
     Route: 065
     Dates: start: 20210213, end: 20210216
  3. PREDNISOLONE. [Concomitant]
     Active Substance: PREDNISOLONE
     Dosage: 1.6 ML (CONC 3MG/ML)
     Route: 065
     Dates: start: 20210306
  4. ZOLGENSMA [Suspect]
     Active Substance: ONASEMNOGENE ABEPARVOVEC-XIOI
     Indication: SPINAL MUSCULAR ATROPHY
     Dosage: 1.1 X E14VG/KG, ONCE/SINGLE
     Route: 042
     Dates: start: 20201210
  5. PREDNISOLONE. [Concomitant]
     Active Substance: PREDNISOLONE
     Dosage: 1 MG/KG
     Route: 065
     Dates: start: 20201230, end: 20210114
  6. PREDNISOLONE. [Concomitant]
     Active Substance: PREDNISOLONE
     Dosage: 2.4 ML (CONC 3MG/ML)
     Route: 065
     Dates: start: 20210225, end: 20210228
  7. PREDNISOLONE. [Concomitant]
     Active Substance: PREDNISOLONE
     Dosage: 1.4 ML (CONC 3MG/ML)
     Route: 065
     Dates: start: 20210125, end: 20210127
  8. PREDNISOLONE. [Concomitant]
     Active Substance: PREDNISOLONE
     Dosage: 5 ML (CONC 3MG/ML)
     Route: 065
     Dates: start: 20210131, end: 20210202
  9. PREDNISOLONE. [Concomitant]
     Active Substance: PREDNISOLONE
     Dosage: 2.6 ML (CONC 3MG/ML)
     Route: 065
     Dates: start: 20210222, end: 20210225
  10. PREDNISOLONE. [Concomitant]
     Active Substance: PREDNISOLONE
     Dosage: 2 ML (CONC 3MG/ML)
     Route: 065
     Dates: start: 20210302, end: 20210303
  11. PREDNISOLONE. [Concomitant]
     Active Substance: PREDNISOLONE
     Dosage: 2.6 ML (CONC 3MG/ML)
     Route: 065
     Dates: start: 20210114, end: 20210127
  12. PREDNISOLONE. [Concomitant]
     Active Substance: PREDNISOLONE
     Dosage: 3.4 ML (CONC 3MG/ML)
     Route: 065
     Dates: start: 20210203, end: 20210213
  13. PREDNISOLONE. [Concomitant]
     Active Substance: PREDNISOLONE
     Dosage: 3 ML (CONC 3MG/ML)
     Route: 065
     Dates: start: 20210216, end: 20210219
  14. PREDNISOLONE. [Concomitant]
     Active Substance: PREDNISOLONE
     Dosage: 1.8 ML (CONC 3MG/ML)
     Route: 065
     Dates: start: 20210303, end: 20210305
  15. PREDNISOLONE. [Concomitant]
     Active Substance: PREDNISOLONE
     Dosage: 2 MG/KG
     Route: 065
     Dates: start: 20201217, end: 20201230
  16. PREDNISOLONE. [Concomitant]
     Active Substance: PREDNISOLONE
     Dosage: 2.8 ML (CONC 3MG/ML)
     Route: 065
     Dates: start: 20210219, end: 20210222
  17. PREDNISOLONE. [Concomitant]
     Active Substance: PREDNISOLONE
     Indication: PRODUCT USED FOR UNKNOWN INDICATION
     Dosage: 1 MG/KG
     Route: 065
     Dates: start: 20201209, end: 20201217
  18. PREDNISOLONE. [Concomitant]
     Active Substance: PREDNISOLONE
     Dosage: 2.2 ML (CONC 3MG/ML)
     Route: 065
     Dates: start: 20210228, end: 20210302

REACTIONS (4)
  - Aspartate aminotransferase increased [Recovering/Resolving]
  - Thrombocytopenia [Recovered/Resolved]
  - Gamma-glutamyltransferase increased [Recovered/Resolved]
  - Alanine aminotransferase increased [Recovered/Resolved]

NARRATIVE: CASE EVENT DATE: 20201216
